FAERS Safety Report 15408343 (Version 4)
Quarter: 2019Q2

REPORT INFORMATION
  Report Type: Spontaneous
  Country: None (occurrence: FR)
  Receive Date: 20180920
  Receipt Date: 20190515
  Transmission Date: 20190711
  Serious: Yes (Hospitalization)
  Sender: FDA-Public Use
  Company Number: FR-PROVELL PHARMACEUTICALS-2055173

PATIENT
  Age: 56 Year
  Sex: Female
  Weight: 66 kg

DRUGS (2)
  1. EUTHYROX [Suspect]
     Active Substance: LEVOTHYROXINE SODIUM
     Indication: PRODUCT USED FOR UNKNOWN INDICATION
     Dates: start: 201705
  2. EUTHYROX [Suspect]
     Active Substance: LEVOTHYROXINE SODIUM
     Dates: start: 201705

REACTIONS (12)
  - Nephropathy [Recovered/Resolved]
  - Loss of libido [Recovered/Resolved]
  - Family stress [None]
  - Pain in extremity [Recovering/Resolving]
  - Behaviour disorder [Recovered/Resolved]
  - Impaired work ability [None]
  - Social problem [None]
  - General physical health deterioration [Recovered/Resolved]
  - Asthenia [Recovered/Resolved]
  - Blood thyroid stimulating hormone decreased [Not Recovered/Not Resolved]
  - Muscle spasms [None]
  - Headache [Recovered/Resolved]

NARRATIVE: CASE EVENT DATE: 20171121
